FAERS Safety Report 8063793 (Version 5)
Quarter: 2023Q4

REPORT INFORMATION
  Report Type: Spontaneous
  Country: FR (occurrence: FR)
  Receive Date: 20110801
  Receipt Date: 20231201
  Transmission Date: 20240110
  Serious: Yes (Death, Hospitalization)
  Sender: FDA-Public Use
  Company Number: PHHY2011FR67267

PATIENT
  Age: 36 Year
  Sex: Male

DRUGS (15)
  1. VORICONAZOLE [Suspect]
     Active Substance: VORICONAZOLE
     Indication: Antifungal treatment
     Dosage: 1 DF, BID (4 MG/KG)
     Route: 042
     Dates: start: 200906
  2. VORICONAZOLE [Suspect]
     Active Substance: VORICONAZOLE
     Dosage: 1 DF, Q12H (6 MG/KG) (EVERY 12 H AS A LOADING DOSE)
     Route: 042
     Dates: start: 200906, end: 200906
  3. CYCLOSPORINE [Suspect]
     Active Substance: CYCLOSPORINE
     Indication: Heart and lung transplant
     Dosage: UNK (ADJUSTED ACCORDING TO DIALYSIS PARAMETERS TO REACH THERAPEUTIC BLOOD LEVELS (300 TO 350 NG/ML))
     Route: 065
  4. CYCLOSPORINE [Suspect]
     Active Substance: CYCLOSPORINE
     Indication: Immunosuppressant drug therapy
  5. CANCIDAS [Suspect]
     Active Substance: CASPOFUNGIN ACETATE
     Indication: Antifungal treatment
     Dosage: 50 MG, QD
     Route: 042
     Dates: start: 200906
  6. CANCIDAS [Suspect]
     Active Substance: CASPOFUNGIN ACETATE
     Indication: Systemic mycosis
     Dosage: 70 MG, QD
     Route: 042
     Dates: start: 200906, end: 200906
  7. BASILIXIMAB [Suspect]
     Active Substance: BASILIXIMAB
     Indication: Heart and lung transplant
     Dosage: 20 MG, (ON THE DAY OF TRANSPLANTATION AND ON DAY 4)
     Route: 042
  8. BASILIXIMAB [Suspect]
     Active Substance: BASILIXIMAB
     Indication: Immunosuppressant drug therapy
  9. PIPERACILLIN [Concomitant]
     Active Substance: PIPERACILLIN
     Indication: Antibiotic therapy
     Dosage: UNK
     Route: 065
  10. TAZOBACTAM [Concomitant]
     Active Substance: TAZOBACTAM
     Indication: Antibiotic therapy
     Dosage: UNK
     Route: 065
  11. SOLU-MEDROL [Concomitant]
     Active Substance: METHYLPREDNISOLONE SODIUM SUCCINATE
     Indication: Immunosuppressant drug therapy
     Dosage: 120 MG, TID (THREE DOSES PER DAY)
     Route: 065
  12. SOLU-MEDROL [Concomitant]
     Active Substance: METHYLPREDNISOLONE SODIUM SUCCINATE
     Dosage: 10 MG/KG, UNK (BODY WEIGHT ON THE DAY OF TRANSPLANTATION)
     Route: 065
  13. FLUCONAZOLE [Concomitant]
     Active Substance: FLUCONAZOLE
     Indication: Candida infection
     Dosage: 20 MG, UNK (AFTER EACH DIALYSIS)
     Route: 042
  14. TOBRAMYCIN [Concomitant]
     Active Substance: TOBRAMYCIN
     Indication: Antibiotic therapy
     Dosage: UNK
     Route: 065
  15. VANCOMYCIN [Concomitant]
     Active Substance: VANCOMYCIN
     Indication: Antibiotic therapy
     Dosage: UNK
     Route: 065

REACTIONS (9)
  - Multiple organ dysfunction syndrome [Fatal]
  - Drug ineffective [Fatal]
  - White blood cell count increased [Fatal]
  - Systemic mycosis [Fatal]
  - Subcutaneous emphysema [Fatal]
  - Pleural effusion [Fatal]
  - Haemothorax [Fatal]
  - Pneumomediastinum [Fatal]
  - Pneumothorax [Fatal]

NARRATIVE: CASE EVENT DATE: 20090101
